FAERS Safety Report 6179800-6 (Version None)
Quarter: 2009Q2

REPORT INFORMATION
  Report Type: 
  Country: None (occurrence: None)
  Receive Date: 20090505
  Receipt Date: 20090430
  Transmission Date: 20091009
  Serious: Yes (Other)
  Sender: FDA-Public Use
  Company Number: US-BRISTOL-MYERS SQUIBB COMPANY-14464747

PATIENT
  Age: 65 Year
  Sex: Male
  Weight: 89 kg

DRUGS (3)
  1. CISPLATIN [Suspect]
     Indication: HEAD AND NECK CANCER
     Dosage: STARTED ON 13-AUG-2007; 100MG/M2 IV ON DAY 8 AND 29.
     Route: 042
     Dates: start: 20070910, end: 20070910
  2. ERBITUX [Suspect]
     Indication: HEAD AND NECK CANCER
     Dosage: STARTED ON 13-AUG-2007;WEEK1 INITIAL DOSE-400MG/M2 ON DAY1,WEEK2 DAY8 250MG/M2 1/WEEK TOTAL 7 DOSES
     Route: 042
     Dates: start: 20071008, end: 20071008
  3. RADIOTHERAPY [Suspect]
     Indication: HEAD AND NECK CANCER
     Dosage: 1 DF = 7000 CGY ; NO. OF FRACTIONS-35.
     Dates: start: 20070929, end: 20070929

REACTIONS (2)
  - LYMPHOPENIA [None]
  - PNEUMONIA ASPIRATION [None]
